FAERS Safety Report 5232892-0 (Version None)
Quarter: 2007Q1

REPORT INFORMATION
  Report Type: 
  Country: None (occurrence: None)
  Receive Date: 20070207
  Receipt Date: 20070129
  Transmission Date: 20070707
  Serious: Yes (Hospitalization)
  Sender: FDA-Public Use
  Company Number: FR-ELI_LILLY_AND_COMPANY-FR200611001261

PATIENT
  Age: 77 Year
  Sex: Female
  Weight: 67 kg

DRUGS (4)
  1. FORTEO [Suspect]
     Indication: OSTEOPOROSIS
     Dosage: 20 UG, DAILY (1/D)
     Route: 058
     Dates: start: 20051029
  2. SECTRAL [Concomitant]
     Dosage: 1 D/F, 2/D
     Route: 048
  3. PERINDOPRIL ERBUMINE [Concomitant]
     Dosage: 1 D/F, DAILY (1/D)
     Route: 048
  4. MEDIATENSYL [Concomitant]
     Dosage: 2 D/F, 2/D
     Route: 048

REACTIONS (3)
  - BLOOD PRESSURE DECREASED [None]
  - FATIGUE [None]
  - MALAISE [None]
